FAERS Safety Report 9743239 (Version 1)
Quarter: 2013Q4

REPORT INFORMATION
  Report Type: Spontaneous
  Country: US (occurrence: US)
  Receive Date: 20131210
  Receipt Date: 20131210
  Transmission Date: 20140711
  Serious: No
  Sender: FDA-Public Use
  Company Number: US-GILEAD-2009-0025147

PATIENT
  Sex: Male
  Weight: 106.59 kg

DRUGS (10)
  1. LETAIRIS [Suspect]
     Indication: PULMONARY ARTERIAL HYPERTENSION
     Route: 048
     Dates: start: 20090417
  2. LEVAQUIN [Concomitant]
  3. HYTRIN [Concomitant]
  4. ALLOPURINOL [Concomitant]
  5. NASONEX [Concomitant]
  6. FENOFIBRATE [Concomitant]
  7. NEXIUM [Concomitant]
  8. LOVAZA [Concomitant]
  9. BENICAR HCT [Concomitant]
  10. LITHIUM CARB [Concomitant]

REACTIONS (1)
  - Nasal congestion [Unknown]
